FAERS Safety Report 26127455 (Version 1)
Quarter: 2025Q4

REPORT INFORMATION
  Report Type: Other
  Country: UA (occurrence: UA)
  Receive Date: 20251205
  Receipt Date: 20251205
  Transmission Date: 20260119
  Serious: Yes (Death)
  Sender: VITRUVIAS THERAPEUTICS
  Company Number: UA-Vitruvias Therapeutics-2189976

PATIENT
  Age: 4 Year
  Sex: Female
  Weight: 20 kg

DRUGS (2)
  1. LIDOCAINE [Suspect]
     Active Substance: LIDOCAINE
  2. CEFTRIAXONE [Suspect]
     Active Substance: CEFTRIAXONE

REACTIONS (2)
  - Kounis syndrome [Fatal]
  - Sepsis [Fatal]
